FAERS Safety Report 10711682 (Version 1)
Quarter: 2015Q1

REPORT INFORMATION
  Report Type: Report from Study
  Country: AR (occurrence: AR)
  Receive Date: 20150114
  Receipt Date: 20150114
  Transmission Date: 20150721
  Serious: Yes (Life-Threatening, Other)
  Sender: FDA-Public Use
  Company Number: PHHY2013AR082325

PATIENT
  Age: 75 Year
  Sex: Female

DRUGS (3)
  1. TOBI PODHALER [Suspect]
     Active Substance: TOBRAMYCIN
     Indication: PSEUDOMONAS INFECTION
  2. ONBREZ BREEZHALER [Suspect]
     Active Substance: INDACATEROL
     Indication: PRODUCT USED FOR UNKNOWN INDICATION
     Dosage: UNK, QD
     Route: 055
     Dates: start: 201301
  3. TOBI PODHALER [Suspect]
     Active Substance: TOBRAMYCIN
     Indication: BRONCHIECTASIS
     Dosage: 4 DF, QD
     Route: 055
     Dates: start: 20140726

REACTIONS (8)
  - Apparent death [Recovering/Resolving]
  - Bronchospasm [Recovering/Resolving]
  - Pyrexia [Recovering/Resolving]
  - Product use issue [Unknown]
  - Dyspnoea [Recovering/Resolving]
  - Incorrect dose administered [Unknown]
  - Mucosal infection [Not Recovered/Not Resolved]
  - Malaise [Recovering/Resolving]

NARRATIVE: CASE EVENT DATE: 20130726
